FAERS Safety Report 10068825 (Version 1)
Quarter: 2014Q2

REPORT INFORMATION
  Report Type: Spontaneous
  Country: GB (occurrence: GB)
  Receive Date: 20140409
  Receipt Date: 20140409
  Transmission Date: 20141212
  Serious: Yes (Other)
  Sender: FDA-Public Use
  Company Number: GB-PFIZER INC-2014096482

PATIENT
  Age: 51 Year
  Sex: Female

DRUGS (3)
  1. HYDROCORTISONE SODIUM SUCCINATE [Suspect]
     Indication: TENOSYNOVITIS STENOSANS
     Dosage: 25 MG, UNK
     Route: 030
     Dates: start: 20131017
  2. KENALOG [Suspect]
     Indication: SKIN DEPIGMENTATION
     Dosage: 20 MG, UNK
     Route: 030
     Dates: start: 20131114
  3. SERTRALINE [Concomitant]
     Dosage: UNK

REACTIONS (6)
  - Skin atrophy [Not Recovered/Not Resolved]
  - Skin depigmentation [Not Recovered/Not Resolved]
  - Condition aggravated [Not Recovered/Not Resolved]
  - Erythema [Not Recovered/Not Resolved]
  - Pruritus [Not Recovered/Not Resolved]
  - Pain [Not Recovered/Not Resolved]
